FAERS Safety Report 5690023-7 (Version None)
Quarter: 2008Q2

REPORT INFORMATION
  Report Type: 
  Country: None (occurrence: None)
  Receive Date: 20080401
  Receipt Date: 20080319
  Transmission Date: 20081010
  Serious: Yes (Hospitalization)
  Sender: FDA-Public Use
  Company Number: DE-ELI_LILLY_AND_COMPANY-DE200801005721

PATIENT
  Age: 24 Year
  Sex: Female

DRUGS (8)
  1. OLANZAPINE [Suspect]
     Indication: SCHIZOPHRENIA
     Dosage: 10 MG, DAILY (1/D)
     Route: 048
  2. OLANZAPINE [Suspect]
     Dosage: 15 MG, DAILY (1/D)
     Route: 048
  3. DULOXETINE HYDROCHLORIDE [Suspect]
     Indication: PSYCHOTIC DISORDER
     Dosage: 60 MG, DAILY (1/D)
  4. PERAZINE [Concomitant]
     Dosage: 150 MG, DAILY (1/D)
  5. SERTRALIN [Concomitant]
     Dosage: 100 MG, DAILY (1/D)
  6. VALPROATE SODIUM [Concomitant]
     Dosage: 150 MG, DAILY (1/D)
  7. LORAZEPAM [Concomitant]
  8. CONTRACEPTIVES NOS [Concomitant]

REACTIONS (3)
  - COAGULOPATHY [None]
  - PNEUMONIA [None]
  - PULMONARY EMBOLISM [None]
